FAERS Safety Report 7326443-4 (Version None)
Quarter: 2011Q1

REPORT INFORMATION
  Report Type: 
  Country: None (occurrence: None)
  Receive Date: 20110302
  Receipt Date: 20110217
  Transmission Date: 20110831
  Serious: Yes (Other)
  Sender: FDA-Public Use
  Company Number: US-SANOFI-AVENTIS-2011SA011349

PATIENT
  Age: 67 Year
  Sex: Male

DRUGS (12)
  1. LOSARTAN POTASSIUM [Concomitant]
  2. FUROSEMIDE [Concomitant]
  3. VITAMIN E [Concomitant]
  4. ASPIRIN [Concomitant]
  5. PREVACID [Concomitant]
  6. PLAVIX [Suspect]
     Indication: CARDIAC OPERATION
     Route: 048
     Dates: start: 20071212
  7. METOLAZONE [Concomitant]
  8. CHLORDIAZEPOXIDE HYDROCHLORIDE/CLIDINIUM BROMIDE [Concomitant]
  9. METOPROLOL [Concomitant]
  10. SIMVASTATIN [Concomitant]
  11. ISOSORBIDE DINITRATE [Concomitant]
  12. KLOR-CON [Concomitant]

REACTIONS (5)
  - PARAESTHESIA [None]
  - CARDIAC FAILURE CONGESTIVE [None]
  - SKIN EXFOLIATION [None]
  - BURNING SENSATION [None]
  - DYSGEUSIA [None]
